FAERS Safety Report 7764983-4 (Version None)
Quarter: 2011Q3

REPORT INFORMATION
  Report Type: 
  Country: None (occurrence: None)
  Receive Date: 20110921
  Receipt Date: 20110909
  Transmission Date: 20111222
  Serious: Yes (Other)
  Sender: FDA-Public Use
  Company Number: US-BAYER-2011-053406

PATIENT
  Age: 19 Year
  Sex: Female
  Weight: 99.773 kg

DRUGS (6)
  1. YAZ [Suspect]
     Indication: MENSTRUATION IRREGULAR
  2. MOTRIN [Concomitant]
     Dosage: UNK
     Route: 048
     Dates: start: 20050101, end: 20090101
  3. YAZ [Suspect]
     Indication: CONTRACEPTION
     Dosage: UNK
     Dates: start: 20070701, end: 20100301
  4. SINGULAIR [Concomitant]
     Dosage: UNK
     Route: 048
     Dates: start: 20050101, end: 20090101
  5. INHALER [Concomitant]
     Dosage: UNK
     Dates: start: 20050101, end: 20090101
  6. NAPROSYN [Concomitant]
     Dosage: UNK
     Dates: start: 20050101, end: 20090101

REACTIONS (5)
  - CHOLECYSTITIS [None]
  - GALLBLADDER DISORDER [None]
  - CHOLELITHIASIS [None]
  - INJURY [None]
  - EMOTIONAL DISTRESS [None]
